FAERS Safety Report 7213244-0 (Version None)
Quarter: 2011Q1

REPORT INFORMATION
  Report Type: 
  Country: None (occurrence: None)
  Receive Date: 20110106
  Receipt Date: 20110102
  Transmission Date: 20110831
  Serious: Yes (Other)
  Sender: FDA-Public Use
  Company Number: US-AMGEN-KDL437043

PATIENT

DRUGS (6)
  1. LOVAZA [Concomitant]
     Dosage: UNK UNK, UNK
     Route: 064
  2. ENBREL [Suspect]
     Indication: RHEUMATOID ARTHRITIS
     Dosage: 50 MG, Q2WK
     Route: 064
     Dates: start: 20060301
  3. ENBREL [Suspect]
     Dates: start: 20060301, end: 20100801
  4. IRON [Concomitant]
     Dosage: UNK UNK, UNK
     Route: 064
  5. PREDNISONE [Concomitant]
     Dosage: UNK UNK, QD
     Route: 064
  6. CALCIUM [Concomitant]
     Dosage: UNK UNK, UNK
     Route: 064

REACTIONS (1)
  - LANGERHANS' CELL HISTIOCYTOSIS [None]
